FAERS Safety Report 14306856 (Version 1)
Quarter: 2017Q4

REPORT INFORMATION
  Report Type: Report from Study
  Country: US (occurrence: US)
  Receive Date: 20171220
  Receipt Date: 20171220
  Transmission Date: 20180321
  Serious: Yes (Other)
  Sender: FDA-Public Use
  Company Number: US-AMGEN-USASL2017185543

PATIENT
  Age: 69 Year
  Sex: Male

DRUGS (1)
  1. REPATHA [Suspect]
     Active Substance: EVOLOCUMAB
     Indication: CARDIOVASCULAR DISORDER
     Dosage: 140 MG, Q2WK
     Route: 065
     Dates: end: 201708

REACTIONS (5)
  - Dizziness [Recovered/Resolved]
  - Nasopharyngitis [Recovered/Resolved]
  - Memory impairment [Recovered/Resolved]
  - Myalgia [Recovered/Resolved]
  - Influenza [Recovered/Resolved]
